FAERS Safety Report 10560361 (Version 1)
Quarter: 2014Q4

REPORT INFORMATION
  Report Type: Spontaneous
  Country: MY (occurrence: MY)
  Receive Date: 20141103
  Receipt Date: 20141103
  Transmission Date: 20150529
  Serious: Yes (Other)
  Sender: FDA-Public Use
  Company Number: MY-ASPEN PHARMA TRADING LIMITED US-AG-2014-003120

PATIENT
  Sex: Female

DRUGS (1)
  1. ARIXTRA [Suspect]
     Active Substance: FONDAPARINUX SODIUM
     Indication: THROMBOSIS PROPHYLAXIS
     Route: 058

REACTIONS (1)
  - Pulmonary embolism [Unknown]
